FAERS Safety Report 15731200 (Version 1)
Quarter: 2018Q4

REPORT INFORMATION
  Report Type: Spontaneous
  Country: CA (occurrence: CA)
  Receive Date: 20181217
  Receipt Date: 20181217
  Transmission Date: 20190205
  Serious: Yes (Death)
  Sender: FDA-Public Use
  Company Number: CA-IMPAX LABORATORIES, LLC-2018-IPXL-03989

PATIENT

DRUGS (2)
  1. LIDOCAINE. [Suspect]
     Active Substance: LIDOCAINE
     Indication: LOCAL ANAESTHESIA
     Dosage: UNK
     Route: 065
  2. ADRENACLICK [Suspect]
     Active Substance: EPINEPHRINE
     Indication: LOCAL ANAESTHESIA
     Dosage: UNK (MG/ML)
     Route: 065

REACTIONS (3)
  - Arrhythmia [Fatal]
  - Cardiac arrest [Fatal]
  - Wrong product administered [Unknown]
